FAERS Safety Report 6472584-3 (Version None)
Quarter: 2009Q4

REPORT INFORMATION
  Report Type: 
  Country: None (occurrence: None)
  Receive Date: 20091203
  Receipt Date: 20081209
  Transmission Date: 20100525
  Serious: No
  Sender: FDA-Public Use
  Company Number: US-AMGEN-KDL323012

PATIENT
  Sex: Female

DRUGS (7)
  1. ENBREL [Suspect]
     Indication: RHEUMATOID ARTHRITIS
  2. MELOXICAM [Concomitant]
  3. DULOXETINE HYDROCHLORIDE [Concomitant]
  4. BORAGE OIL [Concomitant]
  5. UNSPECIFIED MEDICATION [Concomitant]
  6. MISOPROSTOL [Concomitant]
  7. LANSOPRAZOLE [Concomitant]

REACTIONS (1)
  - DERMATITIS ALLERGIC [None]
